FAERS Safety Report 7381454-8 (Version None)
Quarter: 2011Q1

REPORT INFORMATION
  Report Type: 
  Country: None (occurrence: None)
  Receive Date: 20110329
  Receipt Date: 20110321
  Transmission Date: 20110831
  Serious: Yes (Hospitalization, Other)
  Sender: FDA-Public Use
  Company Number: US-PFIZER INC-2011062019

PATIENT
  Sex: Male

DRUGS (5)
  1. ZINECARD [Suspect]
  2. IFOSFAMIDE [Concomitant]
     Dosage: UNK
     Dates: start: 20091101
  3. METHOTREXATE [Suspect]
     Indication: BONE SARCOMA
     Dosage: UNK
     Dates: start: 20091201
  4. DOXORUBICIN HCL [Suspect]
     Indication: BONE SARCOMA
  5. MEPACT [Suspect]
     Indication: BONE SARCOMA
     Dosage: 2 MG/M2
     Dates: start: 20091210, end: 20091229

REACTIONS (1)
  - CELLULITIS [None]
